FAERS Safety Report 5884649-5 (Version None)
Quarter: 2008Q3

REPORT INFORMATION
  Report Type: 
  Country: None (occurrence: None)
  Receive Date: 20080916
  Receipt Date: 20080912
  Transmission Date: 20090109
  Serious: Yes (Death, Life-Threatening, Other)
  Sender: FDA-Public Use
  Company Number: JP-BRISTOL-MYERS SQUIBB COMPANY-14279178

PATIENT
  Age: 73 Year
  Sex: Male

DRUGS (9)
  1. TAXOL [Suspect]
     Indication: NON-SMALL CELL LUNG CANCER
     Dosage: THERAPY INITIATED ON 04-JUL-2008. THERAPY DURATION: 2 DAYS. DRUG CANCELLED ON 18JUL08
     Route: 041
     Dates: start: 20080711, end: 20080711
  2. CARBOMERCK [Suspect]
     Indication: NON-SMALL CELL LUNG CANCER
     Dosage: THERAPY INITIATED ON 4-JUL-2008. THERAPY DURATION: 2 DAYS, DRUG CANCELLED ON 18JUL08
     Route: 041
     Dates: start: 20080711, end: 20080711
  3. NEUTROGIN [Concomitant]
     Route: 058
     Dates: start: 20080717, end: 20080719
  4. MUCODYNE [Concomitant]
     Route: 048
     Dates: start: 20080711
  5. LANSOPRAZOLE [Concomitant]
     Route: 048
     Dates: start: 20080701
  6. FUNGIZONE [Concomitant]
     Route: 048
     Dates: start: 20080702
  7. ALLOID [Concomitant]
     Route: 048
     Dates: start: 20080613
  8. HUSCODE [Concomitant]
     Route: 048
     Dates: start: 20080622
  9. NOVOLIN R [Concomitant]
     Route: 058

REACTIONS (10)
  - ACUTE LEFT VENTRICULAR FAILURE [None]
  - BONE MARROW FAILURE [None]
  - CARDIOMEGALY [None]
  - INFECTION [None]
  - INFLAMMATION [None]
  - LYMPHANGIOSIS CARCINOMATOSA [None]
  - PNEUMONIA [None]
  - PULMONARY OEDEMA [None]
  - RESPIRATORY FAILURE [None]
  - WEIGHT INCREASED [None]
